FAERS Safety Report 6933873-9 (Version None)
Quarter: 2010Q3

REPORT INFORMATION
  Report Type: 
  Country: None (occurrence: None)
  Receive Date: 20100820
  Receipt Date: 20100811
  Transmission Date: 20110219
  Serious: Yes (Hospitalization, Disabling)
  Sender: FDA-Public Use
  Company Number: US-ROCHE-664127

PATIENT
  Sex: Male
  Weight: 58.1 kg

DRUGS (3)
  1. PEGASYS [Suspect]
     Indication: HEPATITIS C
     Route: 058
     Dates: start: 20090401, end: 20091005
  2. COPEGUS [Suspect]
     Indication: HEPATITIS C
     Route: 048
     Dates: start: 20090401, end: 20091005
  3. PRISTIQ [Concomitant]
     Indication: DEPRESSION
     Route: 048
     Dates: start: 20090918, end: 20091009

REACTIONS (13)
  - DIABETIC KETOACIDOSIS [None]
  - HYPOCALCAEMIA [None]
  - HYPOPHOSPHATAEMIA [None]
  - IMPAIRED HEALING [None]
  - PANCREATITIS ACUTE [None]
  - SURGERY [None]
  - THROMBOCYTOPENIA [None]
  - TOOTH ABSCESS [None]
  - TOOTH REPAIR [None]
  - TYPE 1 DIABETES MELLITUS [None]
  - URINARY TRACT INFECTION [None]
  - VITAMIN D DECREASED [None]
  - WHITE BLOOD CELL COUNT DECREASED [None]
